FAERS Safety Report 19522462 (Version 2)
Quarter: 2021Q4

REPORT INFORMATION
  Report Type: Report from Study
  Country: US (occurrence: US)
  Receive Date: 20210713
  Receipt Date: 20211004
  Transmission Date: 20220303
  Serious: Yes (Death, Other)
  Sender: FDA-Public Use
  Company Number: US-BRISTOL-MYERS SQUIBB COMPANY-BMS-2021-067662

PATIENT
  Age: 90 Year
  Sex: Male

DRUGS (1)
  1. APIXABAN [Suspect]
     Active Substance: APIXABAN
     Indication: Cerebrovascular accident prophylaxis
     Dosage: 2.5 MILLIGRAM, BID
     Route: 048

REACTIONS (5)
  - Dementia [Fatal]
  - Chronic obstructive pulmonary disease [Fatal]
  - Cardiac failure [Fatal]
  - Hypertension [Fatal]
  - Atrial fibrillation [Fatal]
